FAERS Safety Report 6980984-8 (Version None)
Quarter: 2010Q3

REPORT INFORMATION
  Report Type: 
  Country: None (occurrence: None)
  Receive Date: 20100914
  Receipt Date: 20100906
  Transmission Date: 20110219
  Serious: Yes (Hospitalization)
  Sender: FDA-Public Use
  Company Number: B0662116A

PATIENT
  Sex: Male

DRUGS (15)
  1. ZOVIRAX [Suspect]
     Indication: HERPES ZOSTER
     Dosage: 200MG PER DAY
     Route: 042
     Dates: start: 20100619, end: 20100622
  2. VIDARABINE [Concomitant]
     Route: 061
  3. ASPIRIN [Concomitant]
     Dosage: 100MG PER DAY
     Route: 048
  4. THYRADIN [Concomitant]
     Dosage: 100MCG PER DAY
     Route: 048
  5. NU-LOTAN [Concomitant]
     Dosage: 12.5MG PER DAY
     Route: 048
  6. ALLEGRA [Concomitant]
     Dosage: 60MG PER DAY
     Route: 048
  7. ARTIST [Concomitant]
     Dosage: 1.25MG PER DAY
     Route: 048
  8. PARIET [Concomitant]
     Dosage: 10MG PER DAY
     Route: 048
  9. PURSENNID [Concomitant]
     Dosage: 3IUAX PER DAY
     Route: 048
  10. NITOROL [Concomitant]
     Dosage: 40MG PER DAY
     Route: 048
  11. PANALDINE [Concomitant]
     Dosage: 200MG PER DAY
     Route: 048
  12. SIGMART [Concomitant]
     Dosage: 15MG PER DAY
     Route: 048
  13. URSO 250 [Concomitant]
     Dosage: 300MG PER DAY
     Route: 048
  14. CALCIUM CARBONATE [Concomitant]
     Dosage: 3G PER DAY
     Route: 048
  15. BASEN [Concomitant]
     Dosage: .9G PER DAY
     Route: 048

REACTIONS (1)
  - ALTERED STATE OF CONSCIOUSNESS [None]
